FAERS Safety Report 24831918 (Version 1)
Quarter: 2025Q1

REPORT INFORMATION
  Report Type: Spontaneous
  Country: US (occurrence: US)
  Receive Date: 20250110
  Receipt Date: 20250110
  Transmission Date: 20250409
  Serious: No
  Sender: AVKARE
  Company Number: US-AvKARE-2168809

PATIENT
  Sex: Male

DRUGS (1)
  1. CAPSAICIN [Suspect]
     Active Substance: CAPSAICIN
     Dates: start: 20250108, end: 20250108

REACTIONS (1)
  - Penile burning sensation [Recovered/Resolved]

NARRATIVE: CASE EVENT DATE: 20250108
